FAERS Safety Report 8280207-6 (Version None)
Quarter: 2012Q2

REPORT INFORMATION
  Report Type: 
  Country: None (occurrence: None)
  Receive Date: 20120412
  Receipt Date: 20110331
  Transmission Date: 20120825
  Serious: No
  Sender: FDA-Public Use
  Company Number: US-ASTRAZENECA-2011SE18522

PATIENT
  Age: 71 Year
  Sex: Female
  Weight: 57.6 kg

DRUGS (4)
  1. LEVOTHYROXINE SODIUM [Concomitant]
     Indication: THYROID DISORDER
     Route: 048
  2. CRESTOR [Suspect]
     Route: 048
     Dates: start: 20100701, end: 20110330
  3. NEXIUM [Suspect]
     Indication: GASTROOESOPHAGEAL REFLUX DISEASE
     Route: 048
     Dates: start: 20101104, end: 20110406
  4. CRESTOR [Suspect]
     Route: 048
     Dates: start: 20100624, end: 20100701

REACTIONS (17)
  - NAUSEA [None]
  - AGITATION [None]
  - MYALGIA [None]
  - DECREASED APPETITE [None]
  - ABDOMINAL PAIN [None]
  - IRRITABILITY [None]
  - WEIGHT DECREASED [None]
  - BLOOD SODIUM DECREASED [None]
  - CONSTIPATION [None]
  - DYSPNOEA [None]
  - NERVOUSNESS [None]
  - BURN OESOPHAGEAL [None]
  - RESTLESSNESS [None]
  - FEELING COLD [None]
  - MALAISE [None]
  - INSOMNIA [None]
  - COLON ADENOMA [None]
